FAERS Safety Report 6480531-3 (Version None)
Quarter: 2009Q4

REPORT INFORMATION
  Report Type: 
  Country: None (occurrence: None)
  Receive Date: 20091123
  Receipt Date: 20090803
  Transmission Date: 20100525
  Serious: No
  Sender: FDA-Public Use
  Company Number: 8049864

PATIENT
  Age: 30 Year
  Sex: Female
  Weight: 68.9 kg

DRUGS (2)
  1. CIMZIA [Suspect]
     Indication: CROHN'S DISEASE
     Dosage: 400 MG SC
     Route: 058
     Dates: start: 20090716
  2. LOMOTIL [Concomitant]

REACTIONS (3)
  - PRURITUS [None]
  - RASH [None]
  - RASH PAPULAR [None]
